FAERS Safety Report 6519389-2 (Version None)
Quarter: 2009Q4

REPORT INFORMATION
  Report Type: 
  Country: None (occurrence: None)
  Receive Date: 20091228
  Receipt Date: 20091223
  Transmission Date: 20100525
  Serious: Yes (Hospitalization)
  Sender: FDA-Public Use
  Company Number: IT-MERCK-0911ITA00043

PATIENT
  Age: 81 Year
  Sex: Female

DRUGS (2)
  1. HYZAAR [Suspect]
     Indication: ESSENTIAL HYPERTENSION
     Route: 048
     Dates: start: 20090915, end: 20091101
  2. FUROSEMIDE [Suspect]
     Indication: ESSENTIAL HYPERTENSION
     Route: 048
     Dates: start: 20090915, end: 20091101

REACTIONS (1)
  - HYPOKALAEMIC SYNDROME [None]
